FAERS Safety Report 7622871-8 (Version None)
Quarter: 2011Q3

REPORT INFORMATION
  Report Type: 
  Country: None (occurrence: None)
  Receive Date: 20110720
  Receipt Date: 20110708
  Transmission Date: 20111222
  Serious: Yes (Hospitalization, Other)
  Sender: FDA-Public Use
  Company Number: US-ELI_LILLY_AND_COMPANY-US201104005368

PATIENT
  Sex: Female
  Weight: 33.56 kg

DRUGS (8)
  1. EVISTA [Suspect]
     Indication: OSTEOPOROSIS
     Dosage: 60 MG, QD
  2. FORTEO [Suspect]
     Indication: OSTEOPOROSIS
     Dosage: 20 UG, QD
     Route: 058
  3. GABAPENTIN [Concomitant]
     Indication: TREMOR
     Dosage: 300 MG, TID
  4. SERTRALINE HYDROCHLORIDE [Concomitant]
     Dosage: 100 MG, BID
  5. LEVOTHYROXINE SODIUM [Concomitant]
     Dosage: 100 UG, UNK
  6. CLONAZEPAM [Concomitant]
     Indication: NERVOUSNESS
     Dosage: 1 MG, QID
  7. DICYCLOMINE [Concomitant]
     Indication: IRRITABLE BOWEL SYNDROME
     Dosage: 1 DF, UNK
  8. HYDROCODONE [Concomitant]
     Dosage: 1 DF, PRN

REACTIONS (8)
  - HIP FRACTURE [None]
  - HYPOTENSION [None]
  - FRACTURE [None]
  - FALL [None]
  - ACCIDENT [None]
  - BONE PAIN [None]
  - LUMBAR VERTEBRAL FRACTURE [None]
  - INSOMNIA [None]
